FAERS Safety Report 5107757-5 (Version None)
Quarter: 2006Q3

REPORT INFORMATION
  Report Type: 
  Country: None (occurrence: None)
  Receive Date: 20060914
  Receipt Date: 20060901
  Transmission Date: 20061208
  Serious: Yes (Hospitalization)
  Sender: FDA-Public Use
  Company Number: 2006093507

PATIENT
  Age: 62 Year
  Sex: Male
  Weight: 118 kg

DRUGS (5)
  1. SU-011,248  (SUNITINIB MALATE) [Suspect]
     Indication: METASTATIC RENAL CELL CARCINOMA
     Dosage: 50 MG (50 MG, 1 IN 1 D), ORAL
     Route: 048
     Dates: start: 20060412
  2. NORVASC [Concomitant]
  3. ASPIRIN [Concomitant]
  4. GLYADE (GLICLAZIDE) [Concomitant]
  5. METFORMIN HCL [Concomitant]

REACTIONS (6)
  - ARTERIOSCLEROSIS CORONARY ARTERY [None]
  - CARDIOMEGALY [None]
  - CARDIOMYOPATHY [None]
  - CORONARY ARTERY DISEASE [None]
  - LEFT VENTRICULAR FAILURE [None]
  - MYOCARDIAL INFARCTION [None]
